FAERS Safety Report 5188812-0 (Version None)
Quarter: 2006Q4

REPORT INFORMATION
  Report Type: 
  Country: None (occurrence: None)
  Receive Date: 20061215
  Receipt Date: 20061207
  Transmission Date: 20070319
  Serious: Yes (Other)
  Sender: FDA-Public Use
  Company Number: 2006SP008120

PATIENT
  Age: 56 Year
  Sex: Male

DRUGS (7)
  1. PEG-INTRON [Suspect]
     Indication: HEPATITIS C
     Dosage: SC
     Route: 058
     Dates: start: 20060920
  2. RIBAVIRIN [Suspect]
     Indication: HEPATITIS C
     Dosage: PO
     Route: 048
     Dates: start: 20060920
  3. NEURONTIN [Concomitant]
  4. SEROQUEL [Concomitant]
  5. SINEQUAN [Concomitant]
  6. TRAZODONE HCI [Concomitant]
  7. ULTRAM [Concomitant]

REACTIONS (11)
  - ABNORMAL FAECES [None]
  - ANAEMIA [None]
  - ARTHRALGIA [None]
  - DIARRHOEA [None]
  - GASTROINTESTINAL DISORDER [None]
  - INSOMNIA [None]
  - MUSCLE SPASMS [None]
  - PYREXIA [None]
  - RECTAL HAEMORRHAGE [None]
  - RESPIRATORY RATE INCREASED [None]
  - WHITE BLOOD CELL COUNT DECREASED [None]
